FAERS Safety Report 5338818-3 (Version None)
Quarter: 2007Q2

REPORT INFORMATION
  Report Type: 
  Country: None (occurrence: None)
  Receive Date: 20070322
  Receipt Date: 20060615
  Transmission Date: 20071010
  Serious: Yes (Hospitalization)
  Sender: FDA-Public Use
  Company Number: 200611696BCC

PATIENT
  Sex: Female
  Weight: 74.8435 kg

DRUGS (7)
  1. ALEVE (CAPLET) [Suspect]
     Indication: ARTHRITIS
     Dosage: 440 MG, BID, ORAL
     Route: 048
     Dates: start: 20051101
  2. LOTREL [Concomitant]
  3. LIPITOR [Concomitant]
  4. CENTRUM [MINERALS NOS, VITAMINS NOS] [Concomitant]
  5. LEVOXYL [Concomitant]
  6. FUROSEMIDE [Concomitant]
  7. KLOR-CON [Concomitant]

REACTIONS (3)
  - HAEMATOCHEZIA [None]
  - HAEMORRHAGE [None]
  - ULCER HAEMORRHAGE [None]
